FAERS Safety Report 7048546-4 (Version None)
Quarter: 2010Q4

REPORT INFORMATION
  Report Type: 
  Country: None (occurrence: None)
  Receive Date: 20101008
  Receipt Date: 20100922
  Transmission Date: 20110411
  Serious: Yes (Hospitalization, Other)
  Sender: FDA-Public Use
  Company Number: ACO_01908_2010

PATIENT
  Age: 44 Year
  Sex: Female
  Weight: 40.8237 kg

DRUGS (13)
  1. AMPYRA [Suspect]
     Indication: PRODUCT USED FOR UNKNOWN INDICATION
     Dosage: 10 MG BID ORAL
     Route: 048
     Dates: start: 20100819, end: 20100820
  2. TYSABRI [Concomitant]
  3. ANTI-DEPRESSANTS [Concomitant]
  4. BACLOFEN [Concomitant]
  5. PROVIGIL [Concomitant]
  6. KLONOPIN [Concomitant]
  7. MACRODANTIN [Concomitant]
  8. NAMENDA [Concomitant]
  9. ANTIVERT [Concomitant]
  10. ATIVAN [Concomitant]
  11. MULTI-VITAMINS [Concomitant]
  12. ACETAMINOPHEN [Concomitant]
  13. IRON [Concomitant]

REACTIONS (2)
  - CONVULSION [None]
  - INCOHERENT [None]
